FAERS Safety Report 6547079-9 (Version None)
Quarter: 2010Q1

REPORT INFORMATION
  Report Type: 
  Country: None (occurrence: None)
  Receive Date: 20100122
  Receipt Date: 20100111
  Transmission Date: 20100710
  Serious: Yes (Hospitalization)
  Sender: FDA-Public Use
  Company Number: AR-PFIZER INC-2009310924

PATIENT
  Age: 64 Year
  Sex: Female
  Weight: 96 kg

DRUGS (6)
  1. SUNITINIB MALATE [Suspect]
     Indication: RENAL CANCER METASTATIC
     Dosage: 25 MG, EVERY DAY, 4 WEEKS ON, 2 WEEKS OFF
     Route: 048
     Dates: start: 20060516, end: 20091118
  2. AMLODIPINE [Concomitant]
     Dosage: UNK
     Route: 048
     Dates: start: 20000701
  3. ATENOLOL [Concomitant]
     Dosage: UNK
     Route: 048
     Dates: start: 20000701
  4. LOSARTAN [Concomitant]
     Dosage: UNK
     Route: 048
     Dates: start: 20000701
  5. OMEPRAZOLE [Concomitant]
     Dosage: UNK
     Route: 048
     Dates: start: 20091119
  6. BENAZEPRIL [Concomitant]
     Dosage: UNK
     Route: 048
     Dates: start: 20090101

REACTIONS (2)
  - BACTERAEMIA [None]
  - GASTRITIS EROSIVE [None]
